FAERS Safety Report 8524376 (Version 11)
Quarter: 2013Q2

REPORT INFORMATION
  Report Type: Report from Study
  Country: AU (occurrence: AU)
  Receive Date: 20120420
  Receipt Date: 20130524
  Transmission Date: 20140414
  Serious: Yes (Hospitalization)
  Sender: FDA-Public Use
  Company Number: AU-ROCHE-1057467

PATIENT
  Age: 68 Year
  Sex: Male
  Weight: 72.5 kg

DRUGS (3)
  1. VEMURAFENIB [Suspect]
     Indication: MALIGNANT MELANOMA
     Dosage: LAST DOSE PRIOR TO SAE ON 04 APRIL 2012.
     Route: 048
     Dates: start: 20110729, end: 20120427
  2. CHLORSIG [Concomitant]
     Route: 065
     Dates: start: 20111216
  3. SALICYLIC ACID [Concomitant]
     Route: 065
     Dates: start: 20120113

REACTIONS (2)
  - Pericarditis [Recovered/Resolved]
  - Neuropathy peripheral [Recovering/Resolving]
